FAERS Safety Report 13019777 (Version 1)
Quarter: 2016Q4

REPORT INFORMATION
  Report Type: Spontaneous
  Country: US (occurrence: US)
  Receive Date: 20161212
  Receipt Date: 20161212
  Transmission Date: 20170207
  Serious: No
  Sender: FDA-Public Use
  Company Number: US-ROCHE-1753642

PATIENT
  Sex: Female

DRUGS (11)
  1. METHOTREXATE. [Concomitant]
     Active Substance: METHOTREXATE
  2. GABAPENTIN. [Concomitant]
     Active Substance: GABAPENTIN
  3. SYNTHROID [Concomitant]
     Active Substance: LEVOTHYROXINE SODIUM
  4. ACTEMRA [Suspect]
     Active Substance: TOCILIZUMAB
     Indication: SYNOVITIS
     Dosage: USE AS DIRECTED
     Route: 058
  5. DOXYCYCLINE HYCLATE. [Concomitant]
     Active Substance: DOXYCYCLINE HYCLATE
  6. ACTEMRA [Suspect]
     Active Substance: TOCILIZUMAB
     Indication: TENOSYNOVITIS
  7. FOLIC ACID. [Concomitant]
     Active Substance: FOLIC ACID
  8. KEPPRA [Concomitant]
     Active Substance: LEVETIRACETAM
  9. ATENOLOL. [Concomitant]
     Active Substance: ATENOLOL
  10. MIRAPEX [Concomitant]
     Active Substance: PRAMIPEXOLE DIHYDROCHLORIDE
  11. OXYBUTYNIN CHLORIDE. [Concomitant]
     Active Substance: OXYBUTYNIN CHLORIDE

REACTIONS (2)
  - Rash [Unknown]
  - Drug ineffective [Unknown]
